FAERS Safety Report 20607034 (Version 3)
Quarter: 2022Q1

REPORT INFORMATION
  Report Type: Spontaneous
  Country: SK (occurrence: SK)
  Receive Date: 20220317
  Receipt Date: 20220331
  Transmission Date: 20220423
  Serious: Yes (Hospitalization, Other)
  Sender: FDA-Public Use
  Company Number: SK-MLMSERVICE-20220307-3416963-1

PATIENT
  Age: 31 Year
  Sex: Male

DRUGS (4)
  1. EPLERENONE [Suspect]
     Active Substance: EPLERENONE
     Indication: Sinus tachycardia
     Dosage: UNK
     Dates: start: 201904
  2. BISOPROLOL [Suspect]
     Active Substance: BISOPROLOL
     Indication: Sinus tachycardia
     Dosage: UNK
     Dates: start: 201904, end: 201904
  3. PERINDOPRIL [Suspect]
     Active Substance: PERINDOPRIL
     Indication: Sinus tachycardia
     Dosage: UNK
     Dates: start: 201904, end: 201904
  4. FUROSEMIDE [Suspect]
     Active Substance: FUROSEMIDE
     Indication: Sinus tachycardia
     Dosage: UNK
     Dates: start: 201904

REACTIONS (4)
  - Hypotension [Unknown]
  - Circulatory collapse [Unknown]
  - Renal impairment [Unknown]
  - Dizziness [Unknown]

NARRATIVE: CASE EVENT DATE: 20190401
